FAERS Safety Report 4688242-1 (Version None)
Quarter: 2005Q2

REPORT INFORMATION
  Report Type: 
  Country: None (occurrence: None)
  Receive Date: 20050609
  Receipt Date: 20050531
  Transmission Date: 20051028
  Serious: Yes (Hospitalization, Other)
  Sender: FDA-Public Use
  Company Number: 2005047851

PATIENT
  Age: 40 Year
  Sex: Female

DRUGS (9)
  1. BEXTRA [Suspect]
     Indication: FOOT OPERATION
     Dosage: 20 MG, ORAL
     Route: 048
     Dates: start: 20050215, end: 20050217
  2. BEXTRA [Suspect]
     Indication: PAIN MANAGEMENT
     Dosage: 20 MG, ORAL
     Route: 048
     Dates: start: 20050215, end: 20050217
  3. WELLBUTRIN SR [Concomitant]
  4. SINGULAIR   DIECKMANN      (MONTELUKAST SODIUM) [Concomitant]
  5. ALLEGRA [Concomitant]
  6. ADVAIR (FLUTICASONE PROPIONATE, SALMETEROL XINAFOATE) [Concomitant]
  7. ACTONEL [Concomitant]
  8. DARVOCET-N 100 [Concomitant]
  9. NEURONTIN [Concomitant]

REACTIONS (4)
  - ALANINE AMINOTRANSFERASE INCREASED [None]
  - ASPARTATE AMINOTRANSFERASE INCREASED [None]
  - MYOCARDIAL INFARCTION [None]
  - POST PROCEDURAL COMPLICATION [None]
